FAERS Safety Report 14366835 (Version 4)
Quarter: 2019Q2

REPORT INFORMATION
  Report Type: Spontaneous
  Country: US (occurrence: US)
  Receive Date: 20180109
  Receipt Date: 20190418
  Transmission Date: 20190711
  Serious: Yes (Other)
  Sender: FDA-Public Use
  Company Number: US-ASTRAZENECA-2018SE02348

PATIENT
  Age: 21887 Day
  Sex: Male
  Weight: 92.1 kg

DRUGS (25)
  1. TAZTIA XT [Concomitant]
     Active Substance: DILTIAZEM HYDROCHLORIDE
     Indication: CARDIOVASCULAR EVENT PROPHYLAXIS
     Route: 065
     Dates: start: 2006, end: 2008
  2. GABAPENTIN. [Concomitant]
     Active Substance: GABAPENTIN
  3. GLUCOTROL XL [Concomitant]
     Active Substance: GLIPIZIDE
  4. NEXIUM [Suspect]
     Active Substance: ESOMEPRAZOLE MAGNESIUM
     Indication: GASTROOESOPHAGEAL REFLUX DISEASE
     Dosage: 40 MG
     Route: 048
     Dates: start: 2010, end: 2016
  5. TIZANIDINE. [Concomitant]
     Active Substance: TIZANIDINE
  6. MECLIZINE [Concomitant]
     Active Substance: MECLIZINE HYDROCHLORIDE
  7. ZOLPIDEM [Concomitant]
     Active Substance: ZOLPIDEM\ZOLPIDEM TARTRATE
  8. TRAMADOL. [Concomitant]
     Active Substance: TRAMADOL
     Indication: PAIN
     Route: 065
     Dates: start: 2005, end: 2015
  9. ASPIRIN. [Concomitant]
     Active Substance: ASPIRIN
     Indication: CARDIOVASCULAR EVENT PROPHYLAXIS
     Route: 065
     Dates: start: 2012
  10. VITAMIN E D [Concomitant]
     Indication: CARDIOVASCULAR EVENT PROPHYLAXIS
     Route: 065
     Dates: start: 2012
  11. JANUVIA [Concomitant]
     Active Substance: SITAGLIPTIN PHOSPHATE
  12. GABAPENTIN. [Concomitant]
     Active Substance: GABAPENTIN
     Indication: SEIZURE
     Route: 065
     Dates: start: 2005, end: 2016
  13. PLAVIX [Concomitant]
     Active Substance: CLOPIDOGREL BISULFATE
     Indication: CARDIOVASCULAR EVENT PROPHYLAXIS
     Route: 065
     Dates: start: 2006, end: 2012
  14. IBUPROFEN. [Concomitant]
     Active Substance: IBUPROFEN
     Indication: PAIN
     Route: 065
     Dates: start: 2005, end: 2007
  15. TUMS [Concomitant]
     Active Substance: CALCIUM CARBONATE
     Route: 065
     Dates: start: 1990
  16. NAPROXEN. [Concomitant]
     Active Substance: NAPROXEN
     Dosage: 500.0MG UNKNOWN
     Route: 048
  17. LIPITOR [Concomitant]
     Active Substance: ATORVASTATIN CALCIUM
     Dosage: 40.0MG UNKNOWN
     Route: 048
  18. METOPROLOL. [Concomitant]
     Active Substance: METOPROLOL
  19. NEXIUM [Suspect]
     Active Substance: ESOMEPRAZOLE MAGNESIUM
     Indication: GASTROOESOPHAGEAL REFLUX DISEASE
     Dosage: 40 MG
     Route: 048
     Dates: start: 2010, end: 2016
  20. PRILOSEC [Suspect]
     Active Substance: OMEPRAZOLE MAGNESIUM
     Indication: GASTROOESOPHAGEAL REFLUX DISEASE
     Route: 048
     Dates: start: 1993
  21. AVALIDE [Concomitant]
     Active Substance: HYDROCHLOROTHIAZIDE\IRBESARTAN
     Indication: HYPERTENSION
     Route: 065
     Dates: start: 2006, end: 2009
  22. PEPTO-BISMOL [Concomitant]
     Active Substance: BISMUTH SUBSALICYLATE
     Route: 065
     Dates: start: 1990
  23. LEVEMIR [Concomitant]
     Active Substance: INSULIN DETEMIR
  24. METFORMIN [Concomitant]
     Active Substance: METFORMIN HYDROCHLORIDE
     Indication: DIABETES MELLITUS
     Route: 065
     Dates: start: 2005, end: 2013
  25. CRESTOR [Concomitant]
     Active Substance: ROSUVASTATIN CALCIUM

REACTIONS (3)
  - Renal failure [Unknown]
  - Renal injury [Unknown]
  - Chronic kidney disease [Not Recovered/Not Resolved]

NARRATIVE: CASE EVENT DATE: 20140127
